FAERS Safety Report 24142824 (Version 1)
Quarter: 2024Q3

REPORT INFORMATION
  Report Type: Spontaneous
  Country: CN (occurrence: CN)
  Receive Date: 20240726
  Receipt Date: 20240726
  Transmission Date: 20241017
  Serious: Yes (Hospitalization)
  Sender: DAIICHI
  Company Number: CN-DSJP-DSJ-2024-136272

PATIENT
  Age: 89 Year
  Sex: Male

DRUGS (3)
  1. EDOXABAN [Suspect]
     Active Substance: EDOXABAN
     Indication: Venous thrombosis limb
     Dosage: 1 DF, QD (30 MG)
     Route: 065
     Dates: start: 2023
  2. EDOXABAN [Suspect]
     Active Substance: EDOXABAN
     Dosage: 1 DF, QD (60 MG)
     Route: 065
     Dates: start: 202309
  3. EDOXABAN [Suspect]
     Active Substance: EDOXABAN
     Dosage: 0.5 DF, QD (60 MG)
     Route: 065

REACTIONS (4)
  - Syncope [Unknown]
  - Haematuria [Unknown]
  - Wrong technique in product usage process [Unknown]
  - Pulmonary embolism [Unknown]

NARRATIVE: CASE EVENT DATE: 20230101
